FAERS Safety Report 9844478 (Version 1)
Quarter: 2014Q1

REPORT INFORMATION
  Report Type: Spontaneous
  Country: FR (occurrence: None)
  Receive Date: 20140123
  Receipt Date: 20140123
  Transmission Date: 20141002
  Serious: Yes (Death)
  Sender: FDA-Public Use
  Company Number: KAD201401-000056

PATIENT
  Sex: 0

DRUGS (2)
  1. RIBAVIRIN [Suspect]
     Indication: HEPATITIS C
  2. PEG-IFN(PEGINTERFERON)(NULL) [Suspect]
     Indication: HEPATITIS C

REACTIONS (1)
  - Infection [None]
